FAERS Safety Report 24075088 (Version 2)
Quarter: 2024Q4

REPORT INFORMATION
  Report Type: Spontaneous
  Country: US (occurrence: US)
  Receive Date: 20240710
  Receipt Date: 20241004
  Transmission Date: 20250114
  Serious: No
  Sender: ALEXION PHARMACEUTICALS
  Company Number: 2024A141964

PATIENT
  Weight: 54.431 kg

DRUGS (1)
  1. DURVALUMAB [Suspect]
     Active Substance: DURVALUMAB
     Indication: Product used for unknown indication

REACTIONS (5)
  - Dizziness [Recovered/Resolved]
  - Presyncope [Recovered/Resolved]
  - Occupational exposure to product [Unknown]
  - Exposure via inhalation [Unknown]
  - Product odour abnormal [Unknown]
